FAERS Safety Report 5627213-5 (Version None)
Quarter: 2008Q1

REPORT INFORMATION
  Report Type: 
  Country: None (occurrence: None)
  Receive Date: 20080212
  Receipt Date: 20080212
  Transmission Date: 20080703
  Serious: Yes (Life-Threatening)
  Sender: FDA-Public Use
  Company Number: None

PATIENT
  Age: 12 Year
  Sex: Female
  Weight: 58.0604 kg

DRUGS (1)
  1. TAMIFLU [Suspect]
     Indication: INFLUENZA
     Dosage: 1     2 PER DAY   PO
     Route: 048
     Dates: start: 20080211, end: 20080211

REACTIONS (4)
  - ABDOMINAL PAIN [None]
  - DRUG HYPERSENSITIVITY [None]
  - HAEMATEMESIS [None]
  - RESPIRATORY ARREST [None]
